FAERS Safety Report 4673506-8 (Version None)
Quarter: 2005Q2

REPORT INFORMATION
  Report Type: 
  Country: None (occurrence: None)
  Receive Date: 20050523
  Receipt Date: 20050513
  Transmission Date: 20051028
  Serious: Yes (Life-Threatening, Hospitalization)
  Sender: FDA-Public Use
  Company Number: 200511501GDS

PATIENT
  Age: 43 Year
  Sex: Female

DRUGS (1)
  1. AVELOX [Suspect]
     Indication: SUICIDE ATTEMPT
     Dosage: 3600 MG, TOTAL DAILY, ORAL
     Route: 048
     Dates: start: 20050508

REACTIONS (3)
  - HYPERAMYLASAEMIA [None]
  - INTENTIONAL MISUSE [None]
  - SUICIDE ATTEMPT [None]
